FAERS Safety Report 8896401 (Version 2)
Quarter: 2013Q1

REPORT INFORMATION
  Report Type: Spontaneous
  Country: JP (occurrence: None)
  Receive Date: 20121102
  Receipt Date: 20121210
  Transmission Date: 20140127
  Serious: Yes (Hospitalization, Other)
  Sender: FDA-Public Use
  Company Number: ADR-2012-02006

PATIENT
  Age: 28 Year
  Sex: Female
  Weight: 38 kg

DRUGS (6)
  1. GABALON [Suspect]
     Dosage: 30 MCG/DAY INITIAL DOSE
  2. DANTRIUM [Concomitant]
  3. TERNELIN [Concomitant]
  4. ALDACTONE [Concomitant]
  5. E KEPPRA [Concomitant]
  6. GABAPEN [Concomitant]

REACTIONS (1)
  - Neurogenic bladder [None]
